FAERS Safety Report 4786191-1 (Version None)
Quarter: 2005Q3

REPORT INFORMATION
  Report Type: 
  Country: None (occurrence: None)
  Receive Date: 20050930
  Receipt Date: 20050923
  Transmission Date: 20060218
  Serious: Yes (Death)
  Sender: FDA-Public Use
  Company Number: 2005-09-1459

PATIENT
  Age: 62 Year
  Sex: Male

DRUGS (7)
  1. PEG-INTRON (PEGINTERFERON ALFA-2B) REDIPEN [Suspect]
     Indication: HEPATITIS C
     Dosage: 120 MCG QWK SUBCUTANEOUS
     Route: 058
  2. RIBAVIRIN [Suspect]
     Indication: HEPATITIS C
     Dosage: 800 MG QD ORAL
     Route: 048
  3. PROTONIX [Concomitant]
  4. FOLATE [Concomitant]
  5. ALDACTONE [Concomitant]
  6. PROCRIT [Concomitant]
  7. LACTULOSE [Concomitant]

REACTIONS (1)
  - DEATH [None]
